FAERS Safety Report 4574733-0 (Version None)
Quarter: 2005Q1

REPORT INFORMATION
  Report Type: 
  Country: None (occurrence: None)
  Receive Date: 20050208
  Receipt Date: 20030521
  Transmission Date: 20050727
  Serious: No
  Sender: FDA-Public Use
  Company Number: US-GLAXOSMITHKLINE-A0409169A

PATIENT
  Age: 21 Year
  Sex: Female

DRUGS (3)
  1. PAXIL CR [Suspect]
     Indication: POSTPARTUM DEPRESSION
     Dosage: 25MG PER DAY
     Route: 048
     Dates: start: 20021221, end: 20030519
  2. PRENATAL VITAMINS [Concomitant]
     Route: 048
  3. PEPCID [Concomitant]
     Route: 048

REACTIONS (6)
  - CHILLS [None]
  - DIZZINESS [None]
  - DRUG WITHDRAWAL SYNDROME [None]
  - HEADACHE [None]
  - NAUSEA [None]
  - VOMITING [None]
